FAERS Safety Report 9817051 (Version 4)
Quarter: 2014Q2

REPORT INFORMATION
  Report Type: Report from Study
  Country: US (occurrence: US)
  Receive Date: 20140114
  Receipt Date: 20140507
  Transmission Date: 20141212
  Serious: Yes (Hospitalization)
  Sender: FDA-Public Use
  Company Number: US-BIOGENIDEC-2014BI000310

PATIENT
  Age: 30 Year
  Sex: Female

DRUGS (18)
  1. TECFIDERA [Suspect]
     Indication: MULTIPLE SCLEROSIS
     Route: 048
     Dates: start: 201312, end: 201401
  2. TECFIDERA [Suspect]
     Indication: MULTIPLE SCLEROSIS
     Route: 048
     Dates: start: 20131217, end: 20140306
  3. VITAMIN B12 [Concomitant]
  4. VITAMIN C [Concomitant]
  5. CAL-MAG-ZINC [Concomitant]
  6. VITAMIN B COMPLEX [Concomitant]
  7. GINKO BILOBA [Concomitant]
  8. BIOTIN [Concomitant]
  9. PANTOPRAZOLE [Concomitant]
  10. VITAMIN D [Concomitant]
  11. BUSPIRONE HCL [Concomitant]
  12. SUMATRIPTAN [Concomitant]
  13. LAMICTAL [Concomitant]
  14. TIZANIDINE HCL [Concomitant]
  15. OXYCODONE [Concomitant]
  16. METRONIDAZOLE [Concomitant]
  17. NIACIN [Concomitant]
  18. MIRALAX [Concomitant]

REACTIONS (7)
  - Drug ineffective [Recovered/Resolved]
  - Multiple sclerosis [Recovered/Resolved]
  - Flank pain [Unknown]
  - Nausea [Recovered/Resolved with Sequelae]
  - Abdominal pain [Unknown]
  - Abdominal discomfort [Unknown]
  - Flushing [Recovered/Resolved with Sequelae]
